FAERS Safety Report 4947197-2 (Version None)
Quarter: 2006Q1

REPORT INFORMATION
  Report Type: 
  Country: None (occurrence: None)
  Receive Date: 20060313
  Receipt Date: 20060227
  Transmission Date: 20060701
  Serious: Yes (Other)
  Sender: FDA-Public Use
  Company Number: 2006028764

PATIENT
  Age: 60 Year
  Sex: Female
  Weight: 115.6672 kg

DRUGS (4)
  1. LIPITOR (ARORVASTATIN) [Suspect]
     Indication: BLOOD CHOLESTEROL INCREASED
     Dosage: 10 MG (10 MG, 1 IN 1 D)
     Dates: start: 20020221
  2. ALL OTHER THERAPEUTIC PRODUCTS [Concomitant]
  3. HYZAAR [Concomitant]
  4. METOPROLOL [Concomitant]

REACTIONS (1)
  - MACULAR DEGENERATION [None]
